FAERS Safety Report 12998403 (Version 1)
Quarter: 2016Q4

REPORT INFORMATION
  Report Type: Spontaneous
  Country: US (occurrence: US)
  Receive Date: 20161205
  Receipt Date: 20161205
  Transmission Date: 20170207
  Serious: Yes (Hospitalization, Other)
  Sender: FDA-Public Use
  Company Number: None

PATIENT
  Age: 75 Year
  Sex: Male
  Weight: 83.92 kg

DRUGS (21)
  1. ZEATHANTHIN/LUTEIN [Concomitant]
  2. CLINDAMYCIN. [Concomitant]
     Active Substance: CLINDAMYCIN
  3. AMLODIPINE [Concomitant]
     Active Substance: AMLODIPINE BESYLATE
  4. FISH OIL [Concomitant]
     Active Substance: FISH OIL
  5. NACL [Concomitant]
     Active Substance: SODIUM CHLORIDE
  6. CENTRUM ADULTS [Concomitant]
  7. ASPIRIN. [Concomitant]
     Active Substance: ASPIRIN
  8. HYDROCODONE/ACETAMINOPHEN [Concomitant]
     Active Substance: ACETAMINOPHEN\HYDROCODONE
  9. PENICILLIN VK [Suspect]
     Active Substance: PENICILLIN V POTASSIUM
  10. CELEBREX [Concomitant]
     Active Substance: CELECOXIB
  11. PREVACID [Concomitant]
     Active Substance: LANSOPRAZOLE
  12. HEPARIN [Concomitant]
     Active Substance: HEPARIN SODIUM
  13. WELLBUTRIN SR [Concomitant]
     Active Substance: BUPROPION HYDROCHLORIDE
  14. METRONIDAZOLE. [Concomitant]
     Active Substance: METRONIDAZOLE
  15. ADULT MULTIPLE VITAMIN [Concomitant]
  16. MORPHINE SULFATE. [Concomitant]
     Active Substance: MORPHINE SULFATE
  17. CIPROFLOXACIN. [Concomitant]
     Active Substance: CIPROFLOXACIN
  18. ATENOLOL. [Concomitant]
     Active Substance: ATENOLOL
  19. CRESTOR [Concomitant]
     Active Substance: ROSUVASTATIN CALCIUM
  20. GLUCOSAMINE [Concomitant]
     Active Substance: GLUCOSAMINE
  21. PANTOPRAZOLE [Concomitant]
     Active Substance: PANTOPRAZOLE SODIUM

REACTIONS (1)
  - Vomiting [None]

NARRATIVE: CASE EVENT DATE: 20161117
